FAERS Safety Report 6541034-0 (Version None)
Quarter: 2010Q1

REPORT INFORMATION
  Report Type: 
  Country: None (occurrence: None)
  Receive Date: 20100118
  Receipt Date: 20100111
  Transmission Date: 20100710
  Serious: Yes (Death, Other)
  Sender: FDA-Public Use
  Company Number: BR-ELI_LILLY_AND_COMPANY-BR201001001629

PATIENT
  Age: 72 Year
  Sex: Male

DRUGS (1)
  1. GEMCITABINE HCL [Suspect]
     Indication: GALLBLADDER CANCER
     Dosage: 1600 MG/M2, WEEKLY (1/W)
     Route: 065

REACTIONS (6)
  - COAGULOPATHY [None]
  - HYPOTENSION [None]
  - INTERSTITIAL LUNG DISEASE [None]
  - PULMONARY TOXICITY [None]
  - RENAL FAILURE ACUTE [None]
  - RESPIRATORY FAILURE [None]
